FAERS Safety Report 25156670 (Version 3)
Quarter: 2025Q4

REPORT INFORMATION
  Report Type: Spontaneous
  Country: US (occurrence: US)
  Receive Date: 20250403
  Receipt Date: 20251015
  Transmission Date: 20260117
  Serious: No
  Sender: SANOFI AVENTIS
  Company Number: US-SA-2025SA094136

PATIENT
  Age: 62 Year
  Sex: Female

DRUGS (2)
  1. DUPIXENT [Suspect]
     Active Substance: DUPILUMAB
     Indication: Asthma
     Dosage: 600 MG, 1X
     Route: 058
     Dates: start: 20240822, end: 20240822
  2. DUPIXENT [Suspect]
     Active Substance: DUPILUMAB
     Dosage: 300 MG, QOW
     Route: 058
     Dates: start: 20240905

REACTIONS (10)
  - Influenza [Recovering/Resolving]
  - Secretion discharge [Unknown]
  - Condition aggravated [Unknown]
  - Upper-airway cough syndrome [Recovering/Resolving]
  - Productive cough [Recovering/Resolving]
  - Fatigue [Recovering/Resolving]
  - Oropharyngeal pain [Recovering/Resolving]
  - Asthma [Recovering/Resolving]
  - Wheezing [Recovering/Resolving]
  - Dyspnoea [Recovering/Resolving]

NARRATIVE: CASE EVENT DATE: 20250101
